FAERS Safety Report 18479397 (Version 1)
Quarter: 2020Q4

REPORT INFORMATION
  Report Type: Spontaneous
  Country: US (occurrence: US)
  Receive Date: 20201106
  Receipt Date: 20201106
  Transmission Date: 20210114
  Serious: Yes (Hospitalization)
  Sender: FDA-Public Use
  Company Number: None

PATIENT
  Sex: Male

DRUGS (2)
  1. LACOSAMIDE. [Suspect]
     Active Substance: LACOSAMIDE
     Dates: start: 20200527
  2. DIVALPROEX [Suspect]
     Active Substance: DIVALPROEX SODIUM
     Indication: SEIZURE

REACTIONS (6)
  - Vomiting [None]
  - Electrolyte imbalance [None]
  - Nausea [None]
  - Dehydration [None]
  - Abdominal pain [None]
  - Pancreatitis [None]

NARRATIVE: CASE EVENT DATE: 20200725
